FAERS Safety Report 7122422-0 (Version None)
Quarter: 2010Q4

REPORT INFORMATION
  Report Type: 
  Country: None (occurrence: None)
  Receive Date: 20101124
  Receipt Date: 20101117
  Transmission Date: 20110411
  Serious: Yes (Hospitalization, Other)
  Sender: FDA-Public Use
  Company Number: US-NOVOPROD-311448

PATIENT
  Sex: Female
  Weight: 60.771 kg

DRUGS (4)
  1. LEVEMIR [Suspect]
     Indication: TYPE 2 DIABETES MELLITUS
     Dosage: 4 U, QD IN A.M.
     Route: 058
     Dates: start: 20100628, end: 20100702
  2. RANEXA [Concomitant]
     Indication: ANGINA UNSTABLE
     Dosage: 500 MG, QD
     Route: 048
  3. IMDUR [Concomitant]
     Indication: ANGINA UNSTABLE
     Route: 048
  4. TOPROL-XL [Concomitant]
     Indication: HYPERTENSION
     Route: 048

REACTIONS (3)
  - ASTHENIA [None]
  - HYPOGLYCAEMIA [None]
  - TREMOR [None]
